FAERS Safety Report 8480897-9 (Version None)
Quarter: 2012Q3

REPORT INFORMATION
  Report Type: 
  Country: None (occurrence: None)
  Receive Date: 20120702
  Receipt Date: 20120625
  Transmission Date: 20120928
  Serious: Yes (Hospitalization, Other)
  Sender: FDA-Public Use
  Company Number: JP-B.I. PHARMACEUTICALS,INC./RIDGEFIELD-2012-BP-14392NB

PATIENT
  Age: 73 Year
  Sex: Female
  Weight: 59 kg

DRUGS (9)
  1. ALENDRONATE SODIUM [Concomitant]
     Route: 065
  2. CRESTOR [Concomitant]
     Route: 065
  3. VERAPAMIL HCL [Concomitant]
     Route: 065
  4. PURSENNID [Concomitant]
     Indication: CONSTIPATION
     Route: 065
  5. AMLODIPINE BESYLATE [Concomitant]
     Route: 065
  6. LANSOPRAZOLE [Concomitant]
     Route: 065
  7. PRADAXA [Suspect]
     Indication: ATRIAL FIBRILLATION
     Dosage: 220 MG
     Route: 048
     Dates: start: 20120619
  8. ASPIRIN [Concomitant]
     Route: 065
  9. DIOVAN [Concomitant]
     Route: 065

REACTIONS (2)
  - CEREBRAL INFARCTION [None]
  - PERIPHERAL EMBOLISM [None]
